FAERS Safety Report 17662773 (Version 2)
Quarter: 2020Q4

REPORT INFORMATION
  Report Type: Spontaneous
  Country: US (occurrence: US)
  Receive Date: 20200413
  Receipt Date: 20201102
  Transmission Date: 20210113
  Serious: No
  Sender: FDA-Public Use
  Company Number: US-ELI_LILLY_AND_COMPANY-US202004003160

PATIENT
  Age: 77 Year
  Sex: Male

DRUGS (6)
  1. BASAGLAR [Suspect]
     Active Substance: INSULIN GLARGINE
     Indication: TYPE 1 DIABETES MELLITUS
     Dosage: 45 U, DAILY
     Route: 058
     Dates: start: 202001
  2. BASAGLAR [Suspect]
     Active Substance: INSULIN GLARGINE
     Dosage: 45 U, DAILY
     Route: 058
  3. BASAGLAR [Suspect]
     Active Substance: INSULIN GLARGINE
     Indication: TYPE 1 DIABETES MELLITUS
     Dosage: 45 U, DAILY
     Route: 058
     Dates: start: 202001
  4. BASAGLAR [Suspect]
     Active Substance: INSULIN GLARGINE
     Dosage: 54 U, DAILY
     Route: 058
  5. BASAGLAR [Suspect]
     Active Substance: INSULIN GLARGINE
     Dosage: 54 U, DAILY
     Route: 058
  6. BASAGLAR [Suspect]
     Active Substance: INSULIN GLARGINE
     Indication: TYPE 1 DIABETES MELLITUS
     Dosage: 45 U, DAILY
     Route: 058
     Dates: start: 202001

REACTIONS (3)
  - Injection site pain [Unknown]
  - Incorrect dose administered [Unknown]
  - Injection site urticaria [Unknown]

NARRATIVE: CASE EVENT DATE: 20200301
